FAERS Safety Report 6182797-6 (Version None)
Quarter: 2009Q2

REPORT INFORMATION
  Report Type: 
  Country: None (occurrence: None)
  Receive Date: 20090507
  Receipt Date: 20090506
  Transmission Date: 20091009
  Serious: Yes (Hospitalization)
  Sender: FDA-Public Use
  Company Number: US-WYE-H09064709

PATIENT
  Sex: Female
  Weight: 47 kg

DRUGS (4)
  1. TEMSIROLIMUS [Suspect]
     Indication: MULTIPLE MYELOMA
     Dosage: 25 MG DAYS 1,8,15,22,29 EVERY 35 DAYS
     Dates: start: 20090406, end: 20090420
  2. ACYCLOVIR SODIUM [Concomitant]
     Route: 048
  3. AREDIA [Concomitant]
     Route: 042
  4. BORTEZOMIB [Suspect]
     Indication: MULTIPLE MYELOMA
     Dosage: 1.6 MG/M^2 DAYS 1,8,15,22 EVERY 35 DAYS
     Dates: start: 20090406, end: 20090420

REACTIONS (3)
  - HYPOXIA [None]
  - PYREXIA [None]
  - RECTAL HAEMORRHAGE [None]
